FAERS Safety Report 7268834-6 (Version None)
Quarter: 2011Q1

REPORT INFORMATION
  Report Type: 
  Country: None (occurrence: None)
  Receive Date: 20110201
  Receipt Date: 20110127
  Transmission Date: 20110831
  Serious: Yes (Hospitalization, Other)
  Sender: FDA-Public Use
  Company Number: US-PFIZER INC-2011020002

PATIENT
  Sex: Female
  Weight: 65.76 kg

DRUGS (1)
  1. ALPRAZOLAM [Suspect]
     Indication: ANXIETY
     Dosage: 1 MG, 4X/DAY
     Route: 048
     Dates: start: 19840101

REACTIONS (5)
  - INJURY [None]
  - TACHYPHRENIA [None]
  - EPILEPSY [None]
  - ANXIETY [None]
  - POST-TRAUMATIC STRESS DISORDER [None]
